FAERS Safety Report 6263964-X (Version None)
Quarter: 2009Q3

REPORT INFORMATION
  Report Type: 
  Country: None (occurrence: None)
  Receive Date: 20090708
  Receipt Date: 20090708
  Transmission Date: 20100115
  Serious: Yes (Other)
  Sender: FDA-Public Use
  Company Number: None

PATIENT
  Sex: Female
  Weight: 92.5338 kg

DRUGS (2)
  1. ZICAM COLD REMEDY GEL SWABS ZINCUM GLUCIRICUM 2X MATIRIXX INITIATIVES, [Suspect]
     Indication: NASOPHARYNGITIS
     Dosage: 1 MEDICATED SWAB EVRY 4 HRS FOR 48 NASAL
     Route: 045
     Dates: start: 20040101, end: 20090101
  2. ZICAM NASAL SPRAY ? MATRIXX INITIAVES, INC [Suspect]
     Indication: NASOPHARYNGITIS
     Dosage: SPRAY IN NOSTRILS EVRY 4 HRS FOR 48 NASAL
     Route: 045
     Dates: start: 20010101, end: 20050101

REACTIONS (4)
  - ANOSMIA [None]
  - HYPOSMIA [None]
  - INFLUENZA [None]
  - NASOPHARYNGITIS [None]
